FAERS Safety Report 25485095 (Version 1)
Quarter: 2025Q2

REPORT INFORMATION
  Report Type: Spontaneous
  Country: FR (occurrence: FR)
  Receive Date: 20250626
  Receipt Date: 20250626
  Transmission Date: 20250716
  Serious: Yes (Death, Other)
  Sender: RANBAXY
  Company Number: FR-SUN PHARMACEUTICAL INDUSTRIES LTD-2025RR-513727

PATIENT
  Age: 62 Year
  Weight: 57 kg

DRUGS (3)
  1. CAPECITABINE [Suspect]
     Active Substance: CAPECITABINE
     Indication: Breast cancer
     Dosage: 1500 MILLIGRAM, BID
     Route: 042
     Dates: start: 2020
  2. CAPECITABINE [Suspect]
     Active Substance: CAPECITABINE
     Dosage: 1150 MILLIGRAM, BID
     Route: 065
  3. ANASTROZOLE [Suspect]
     Active Substance: ANASTROZOLE
     Indication: Breast cancer
     Route: 065
     Dates: start: 2010, end: 2016

REACTIONS (4)
  - Neoplasm progression [Fatal]
  - Anaemia [Unknown]
  - Palmar-plantar erythrodysaesthesia syndrome [Unknown]
  - Hypercalcaemia [Unknown]
